FAERS Safety Report 8157119-1 (Version None)
Quarter: 2012Q1

REPORT INFORMATION
  Report Type: 
  Country: None (occurrence: None)
  Receive Date: 20120222
  Receipt Date: 20120215
  Transmission Date: 20120608
  Serious: Yes (Hospitalization)
  Sender: FDA-Public Use
  Company Number: JP-NOVOPROD-344189

PATIENT
  Age: 75 Year
  Sex: Male
  Weight: 47 kg

DRUGS (5)
  1. NOVORAPID CHU FLEXPEN [Suspect]
     Indication: TYPE 2 DIABETES MELLITUS
     Dosage: 21 U, QD
     Route: 058
     Dates: start: 20110907, end: 20111129
  2. HUMALOG [Suspect]
     Dosage: 18 U, QD
     Route: 058
     Dates: start: 20110107, end: 20110520
  3. PENFILL N CHU [Suspect]
     Indication: TYPE 2 DIABETES MELLITUS
     Dosage: 2 U, QD
     Route: 058
  4. LANTUS [Suspect]
     Indication: PRODUCT USED FOR UNKNOWN INDICATION
     Dosage: 10 U, QD
     Route: 058
     Dates: start: 20110107, end: 20110521
  5. HUMALIN [Concomitant]
     Dosage: 36 U, QD
     Route: 042
     Dates: start: 20111129, end: 20120202

REACTIONS (2)
  - ANTI-INSULIN ANTIBODY POSITIVE [None]
  - HYPOGLYCAEMIA [None]
